FAERS Safety Report 9837226 (Version 1)
Quarter: 2014Q1

REPORT INFORMATION
  Report Type: Spontaneous
  Country: US (occurrence: None)
  Receive Date: 20140116
  Receipt Date: 20140116
  Transmission Date: 20141002
  Serious: Yes (Life-Threatening)
  Sender: FDA-Public Use
  Company Number: None

PATIENT
  Age: 57 Year
  Sex: Male
  Weight: 87.3 kg

DRUGS (1)
  1. REGADENOSON [Suspect]
     Indication: CARDIAC IMAGING PROCEDURE
     Dates: start: 20140113, end: 20140113

REACTIONS (4)
  - Bradycardia [None]
  - Loss of consciousness [None]
  - Hypotension [None]
  - Cardio-respiratory arrest [None]
